FAERS Safety Report 5741672-9 (Version None)
Quarter: 2008Q2

REPORT INFORMATION
  Report Type: 
  Country: None (occurrence: None)
  Receive Date: 20080519
  Receipt Date: 20070419
  Transmission Date: 20081010
  Serious: Yes (Life-Threatening, Hospitalization)
  Sender: FDA-Public Use
  Company Number: US-BAYER-US-2007-012342

PATIENT
  Age: 41 Year
  Sex: Female

DRUGS (4)
  1. ULTRAVIST 300 [Suspect]
     Indication: UROGRAM
     Dosage: UNIT DOSE: 100 ML
     Route: 042
     Dates: start: 20070329, end: 20070329
  2. LABETALOL HCL [Concomitant]
     Route: 048
  3. ENALAPRIL MALEATE [Concomitant]
     Route: 048
  4. LEVOTHYROXINE SODIUM [Concomitant]
     Route: 048

REACTIONS (17)
  - ANAPHYLACTIC REACTION [None]
  - COLD SWEAT [None]
  - DEPRESSED LEVEL OF CONSCIOUSNESS [None]
  - DISORIENTATION [None]
  - DYSPNOEA [None]
  - FACE OEDEMA [None]
  - HOT FLUSH [None]
  - HYPOAESTHESIA [None]
  - HYPOAESTHESIA FACIAL [None]
  - HYPOTENSION [None]
  - LIP SWELLING [None]
  - OCULAR HYPERAEMIA [None]
  - OEDEMA PERIPHERAL [None]
  - PAIN [None]
  - PILOERECTION [None]
  - PULSE PRESSURE DECREASED [None]
  - TACHYCARDIA [None]
